FAERS Safety Report 7269799-3 (Version None)
Quarter: 2011Q1

REPORT INFORMATION
  Report Type: 
  Country: None (occurrence: None)
  Receive Date: 20110202
  Receipt Date: 20110131
  Transmission Date: 20110831
  Serious: Yes (Life-Threatening, Hospitalization, Other)
  Sender: FDA-Public Use
  Company Number: SA-ROXANE LABORATORIES, INC.-2011-RO-00121RO

PATIENT
  Age: 20 Year
  Sex: Female

DRUGS (1)
  1. CITALOPRAM [Suspect]
     Indication: DEPRESSION
     Dosage: 1800 MG
     Route: 048

REACTIONS (4)
  - METABOLIC ACIDOSIS [None]
  - CONVULSION [None]
  - SUICIDE ATTEMPT [None]
  - INTENTIONAL OVERDOSE [None]
